FAERS Safety Report 15955261 (Version 2)
Quarter: 2019Q1

REPORT INFORMATION
  Report Type: Report from Study
  Country: FR (occurrence: FR)
  Receive Date: 20190213
  Receipt Date: 20190326
  Transmission Date: 20190417
  Serious: Yes (Other)
  Sender: FDA-Public Use
  Company Number: FR-ROCHE-2261602

PATIENT
  Age: 55 Year
  Sex: Male
  Weight: 104 kg

DRUGS (15)
  1. RITUXIMAB. [Suspect]
     Active Substance: RITUXIMAB
     Indication: DIFFUSE LARGE B-CELL LYMPHOMA
     Dosage: DATE OF MOST RECENT DOSE OF DOXORUBICIN PRIOR TO SAE ONSET 08 JAN 2019 (750 MG)
     Route: 042
     Dates: start: 20181105
  2. SPECIAFOLDINE [Concomitant]
     Active Substance: FOLIC ACID
     Route: 048
     Dates: start: 20181106
  3. INNOHEP [Concomitant]
     Active Substance: TINZAPARIN SODIUM
     Indication: PULMONARY EMBOLISM
     Route: 058
     Dates: start: 20181203
  4. DOXORUBICIN [Suspect]
     Active Substance: DOXORUBICIN
     Indication: DIFFUSE LARGE B-CELL LYMPHOMA
     Dosage: DATE OF MOST RECENT DOSE OF DOXORUBICIN PRIOR TO SAE ONSET 08 JAN 2019 (100 MG)
     Route: 042
     Dates: start: 20181105
  5. PREDNISONE. [Suspect]
     Active Substance: PREDNISONE
     Indication: DIFFUSE LARGE B-CELL LYMPHOMA
     Dosage: ON DAYS 1-5 OF EVERY 21-DAY CYCLE?DATE OF MOST RECENT DOSE OF PREDNISONE 12 JAN 2019 (100 MG)
     Route: 048
     Dates: start: 20181105
  6. FLUCONAZOLE. [Concomitant]
     Active Substance: FLUCONAZOLE
     Route: 048
     Dates: start: 20181204
  7. BLINDED POLATUZUMAB VEDOTIN [Suspect]
     Active Substance: POLATUZUMAB VEDOTIN
     Indication: DIFFUSE LARGE B-CELL LYMPHOMA
     Dosage: DATE OF MOST RECENT DOSE OF BLINDED POLATUZUMAB VEDOTIN PRIOR TO SAE ONSET 08 JAN 2019?ON DAY 1 OF E
     Route: 042
     Dates: start: 20181106
  8. ALLOPURINOL. [Concomitant]
     Active Substance: ALLOPURINOL
     Indication: CALCULUS URINARY
     Route: 048
  9. PANTOPRAZOLE [Concomitant]
     Active Substance: PANTOPRAZOLE
     Indication: GASTROOESOPHAGEAL REFLUX DISEASE
     Route: 048
     Dates: start: 20181105
  10. VALACICLOVIR [Concomitant]
     Active Substance: VALACYCLOVIR HYDROCHLORIDE
     Route: 048
     Dates: start: 20181105
  11. BLINDED VINCRISTINE [Suspect]
     Active Substance: VINCRISTINE
     Indication: DIFFUSE LARGE B-CELL LYMPHOMA
     Dosage: DATE OF MOST RECENT DOSE OF BLINDED VINCRISTINE PRIOR TO SAE ONSET 08 JAN 2019?ON DAY 1 OF EVERY 21-
     Route: 042
     Dates: start: 20181105
  12. BACTRIM [Concomitant]
     Active Substance: SULFAMETHOXAZOLE\TRIMETHOPRIM
     Route: 048
     Dates: start: 20181106
  13. ZOPHREN [Concomitant]
     Active Substance: ONDANSETRON
     Indication: NAUSEA
     Route: 048
     Dates: start: 20190109
  14. PRIMPERAN [Concomitant]
     Active Substance: METOCLOPRAMIDE HYDROCHLORIDE
     Indication: NAUSEA
     Route: 048
     Dates: start: 20190128
  15. CYCLOPHOSPHAMIDE. [Suspect]
     Active Substance: CYCLOPHOSPHAMIDE
     Indication: DIFFUSE LARGE B-CELL LYMPHOMA
     Dosage: DATE OF MOST RECENT DOSE OF CYCLOPHOSPHAMIDE PRIOR TO SAE ONSET 08 JAN 2019 (1500 MG)
     Route: 042
     Dates: start: 20181105

REACTIONS (1)
  - Papillary renal cell carcinoma [Not Recovered/Not Resolved]

NARRATIVE: CASE EVENT DATE: 20190125
